FAERS Safety Report 6111983-6 (Version None)
Quarter: 2009Q1

REPORT INFORMATION
  Report Type: 
  Country: None (occurrence: None)
  Receive Date: 20090310
  Receipt Date: 20081202
  Transmission Date: 20090719
  Serious: Yes (Other)
  Sender: FDA-Public Use
  Company Number: 2008S1021509

PATIENT
  Age: 39 Year
  Sex: Male

DRUGS (2)
  1. METHOTREXATE [Suspect]
     Indication: B PRECURSOR TYPE ACUTE LEUKAEMIA
     Dosage: 3000 MG/M**2; INTRAVENOUS DRIP
     Route: 041
  2. GEMFIBROZIL [Suspect]
     Indication: HYPERCHOLESTEROLAEMIA

REACTIONS (2)
  - MUCOSAL INFLAMMATION [None]
  - RENAL FAILURE ACUTE [None]
